FAERS Safety Report 17524183 (Version 1)
Quarter: 2020Q1

REPORT INFORMATION
  Report Type: Spontaneous
  Country: US (occurrence: US)
  Receive Date: 20200310
  Receipt Date: 20200310
  Transmission Date: 20200409
  Serious: Yes (Other)
  Sender: FDA-Public Use
  Company Number: None

PATIENT
  Age: 60 Year
  Sex: Female
  Weight: 66.15 kg

DRUGS (4)
  1. VENTOLIN HFA [Concomitant]
     Active Substance: ALBUTEROL SULFATE
  2. DIAZEPAM. [Concomitant]
     Active Substance: DIAZEPAM
  3. OMEPRAZOLE DR CAPS 20 MG GENERIC FOR: PRILOSEC CAPS [Suspect]
     Active Substance: OMEPRAZOLE
     Indication: DYSPEPSIA
     Dosage: ?          QUANTITY:1 CAPSULE(S);?
     Route: 048
     Dates: start: 20191021, end: 20191025
  4. ALBUTEROL. [Concomitant]
     Active Substance: ALBUTEROL

REACTIONS (6)
  - Abdominal pain upper [None]
  - Vomiting [None]
  - Drug ineffective [None]
  - Dyspepsia [None]
  - Product physical issue [None]
  - Product formulation issue [None]

NARRATIVE: CASE EVENT DATE: 20191028
